FAERS Safety Report 24206139 (Version 1)
Quarter: 2024Q3

REPORT INFORMATION
  Report Type: Spontaneous
  Country: US (occurrence: None)
  Receive Date: 20240813
  Receipt Date: 20240813
  Transmission Date: 20241017
  Serious: Yes (Other)
  Sender: Public
  Company Number: None

PATIENT
  Age: 74 Year
  Sex: Female
  Weight: 71.67 kg

DRUGS (1)
  1. SALONPAS LIDOCAINE PAIN RELIEVING [Suspect]
     Active Substance: LIDOCAINE
     Indication: Nerve compression
     Dosage: OTHER QUANTITY : 1 PATCH(ES);?FREQUENCY : DAILY;?OTHER ROUTE : APPLIED AS MEDICATED PATCH TO SKIN;?
     Route: 050
     Dates: start: 20240729, end: 20240801

REACTIONS (4)
  - Neuralgia [None]
  - Urticaria [None]
  - Urticaria [None]
  - Application site erythema [None]

NARRATIVE: CASE EVENT DATE: 20240801
